FAERS Safety Report 15883411 (Version 1)
Quarter: 2019Q1

REPORT INFORMATION
  Report Type: Report from Study
  Country: ES (occurrence: ES)
  Receive Date: 20190129
  Receipt Date: 20190129
  Transmission Date: 20190417
  Serious: Yes (Life-Threatening, Hospitalization)
  Sender: FDA-Public Use
  Company Number: ES-ACCORD-103431

PATIENT
  Age: 35 Year
  Sex: Female

DRUGS (6)
  1. OLANZAPINE. [Interacting]
     Active Substance: OLANZAPINE
     Route: 048
     Dates: start: 20170306, end: 20170306
  2. PAROXETINE. [Concomitant]
     Active Substance: PAROXETINE
     Indication: PERSONALITY DISORDER
     Route: 048
     Dates: start: 20151113, end: 20160305
  3. OXCARBAZEPINE. [Interacting]
     Active Substance: OXCARBAZEPINE
     Route: 048
     Dates: start: 20170306, end: 20170306
  4. PAROXETINE. [Interacting]
     Active Substance: PAROXETINE
     Route: 048
     Dates: start: 20170306, end: 20170306
  5. CLONAZEPAM. [Concomitant]
     Active Substance: CLONAZEPAM
     Indication: PERSONALITY DISORDER
     Route: 048
     Dates: start: 201607, end: 20170305
  6. CLONAZEPAM. [Suspect]
     Active Substance: CLONAZEPAM
     Route: 048
     Dates: start: 20170306, end: 20170306

REACTIONS (3)
  - Coma [Recovered/Resolved]
  - Intentional overdose [Unknown]
  - Drug interaction [Unknown]

NARRATIVE: CASE EVENT DATE: 20170306
